FAERS Safety Report 9120867 (Version 1)
Quarter: 2013Q1

REPORT INFORMATION
  Report Type: Spontaneous
  Country: US (occurrence: US)
  Receive Date: 20130226
  Receipt Date: 20130226
  Transmission Date: 20140127
  Serious: Yes (Death)
  Sender: FDA-Public Use
  Company Number: CHPA2013US003598

PATIENT
  Sex: Male

DRUGS (1)
  1. PREVACID 24HR 15MG [Suspect]
     Indication: DYSPEPSIA
     Dosage: 30 MG, QD
     Route: 048

REACTIONS (3)
  - Death [Fatal]
  - Prescribed overdose [Unknown]
  - Off label use [Unknown]
